FAERS Safety Report 14967010 (Version 1)
Quarter: 2018Q2

REPORT INFORMATION
  Report Type: Spontaneous
  Country: CA (occurrence: CA)
  Receive Date: 20180604
  Receipt Date: 20180604
  Transmission Date: 20180711
  Serious: Yes (Other)
  Sender: FDA-Public Use
  Company Number: CA-SUN PHARMACEUTICAL INDUSTRIES LTD-2018US-174228

PATIENT
  Sex: Male

DRUGS (33)
  1. OLANZAPINE. [Suspect]
     Active Substance: OLANZAPINE
     Dosage: 15 MG, DAILY
     Route: 065
     Dates: start: 200611, end: 200701
  2. PERPHENAZINE. [Concomitant]
     Active Substance: PERPHENAZINE
     Dosage: 32 MG, DAILY
     Route: 065
     Dates: end: 200708
  3. ASENAPINE [Concomitant]
     Active Substance: ASENAPINE
     Indication: PSYCHOTIC DISORDER
     Dosage: UNK
     Route: 065
     Dates: start: 2012, end: 2012
  4. VALPROATE [Concomitant]
     Active Substance: VALPROIC ACID
     Indication: AFFECTIVE DISORDER
     Dosage: UNK
     Route: 065
     Dates: end: 200711
  5. GABAPENTIN. [Concomitant]
     Active Substance: GABAPENTIN
     Indication: AFFECTIVE DISORDER
     Dosage: UNK
     Route: 065
     Dates: end: 200706
  6. RISPERIDONE. [Suspect]
     Active Substance: RISPERIDONE
     Indication: PSYCHOTIC DISORDER
     Dosage: 3 MG, DAILY
     Route: 065
     Dates: start: 199904, end: 200404
  7. LOXAPINE. [Concomitant]
     Active Substance: LOXAPINE
     Dosage: UNK
     Route: 065
     Dates: end: 200812
  8. AMISULPRIDE [Concomitant]
     Active Substance: AMISULPRIDE
     Indication: PSYCHOTIC DISORDER
     Dosage: UNK
     Route: 065
     Dates: start: 201401
  9. CITALOPRAM [Concomitant]
     Active Substance: CITALOPRAM HYDROBROMIDE
     Indication: DEPRESSION
     Dosage: UNK
     Dates: start: 200410, end: 200704
  10. CLOMIPRAMINE [Concomitant]
     Active Substance: CLOMIPRAMINE
     Indication: DEPRESSION
     Dosage: UNK
     Route: 065
     Dates: start: 200803, end: 200903
  11. LITHIUM. [Suspect]
     Active Substance: LITHIUM
     Dosage: 1050 MG, DAILY
     Route: 065
     Dates: end: 200807
  12. CLOZAPINE. [Suspect]
     Active Substance: CLOZAPINE
     Indication: PSYCHOTIC DISORDER
     Dosage: 350 MG, DAILY
     Route: 065
     Dates: start: 200404, end: 200611
  13. OLANZAPINE. [Suspect]
     Active Substance: OLANZAPINE
     Dosage: 40 MG, DAILY
     Route: 065
     Dates: start: 200704, end: 200801
  14. RISPERIDONE. [Suspect]
     Active Substance: RISPERIDONE
     Dosage: 3 MG, DAILY
     Route: 065
     Dates: start: 201404
  15. LITHIUM. [Suspect]
     Active Substance: LITHIUM
     Dosage: 2400 MG, DAILY
     Route: 065
  16. PERPHENAZINE. [Concomitant]
     Active Substance: PERPHENAZINE
     Dosage: UNK
     Route: 065
     Dates: start: 200612
  17. LOXAPINE. [Concomitant]
     Active Substance: LOXAPINE
     Dosage: UNK
     Route: 065
     Dates: end: 2013
  18. THIORIDAZINE [Concomitant]
     Active Substance: THIORIDAZINE
     Indication: PSYCHOTIC DISORDER
     Dosage: UNK
     Route: 065
     Dates: end: 20070628
  19. TRIFLUOPERAZINE [Concomitant]
     Active Substance: TRIFLUOPERAZINE\TRIFLUOPERAZINE HYDROCHLORIDE
     Indication: PSYCHOTIC DISORDER
     Dosage: UNK
     Dates: start: 20080326, end: 20090319
  20. ZIPRASIDONE. [Concomitant]
     Active Substance: ZIPRASIDONE
     Indication: PSYCHOTIC DISORDER
     Dosage: UNK
     Route: 065
     Dates: start: 2012, end: 2012
  21. FLUOXETINE [Concomitant]
     Active Substance: FLUOXETINE HYDROCHLORIDE
     Indication: DEPRESSION
     Dosage: UNK
     Route: 065
     Dates: start: 200711, end: 200903
  22. RISPERIDONE. [Suspect]
     Active Substance: RISPERIDONE
     Dosage: 4 MG, DAILY
     Route: 065
     Dates: end: 200708
  23. RISPERIDONE. [Suspect]
     Active Substance: RISPERIDONE
     Dosage: 8 MG, DAILY
     Route: 065
     Dates: start: 2011, end: 2013
  24. HALOPERIDOL. [Concomitant]
     Active Substance: HALOPERIDOL
     Indication: PSYCHOTIC DISORDER
     Dosage: UNK
     Route: 065
     Dates: start: 2006, end: 2006
  25. ARIPIPRAZOLE. [Concomitant]
     Active Substance: ARIPIPRAZOLE
     Indication: PSYCHOTIC DISORDER
     Dosage: UNK
     Route: 065
     Dates: start: 2011
  26. GABAPENTIN. [Concomitant]
     Active Substance: GABAPENTIN
     Dosage: UNK
     Route: 065
     Dates: end: 200811
  27. OLANZAPINE. [Suspect]
     Active Substance: OLANZAPINE
     Indication: PSYCHOTIC DISORDER
     Dosage: 20 MG, DAILY
     Route: 065
     Dates: start: 200101, end: 200404
  28. PERPHENAZINE. [Concomitant]
     Active Substance: PERPHENAZINE
     Indication: PSYCHOTIC DISORDER
     Dosage: UNK
     Route: 065
     Dates: start: 200604
  29. LOXAPINE. [Concomitant]
     Active Substance: LOXAPINE
     Indication: PSYCHOTIC DISORDER
     Dosage: UNK
     Route: 065
     Dates: end: 200611
  30. QUIETAPINE [Concomitant]
     Indication: PSYCHOTIC DISORDER
     Dosage: UNK
     Dates: start: 200903
  31. LITHIUM. [Suspect]
     Active Substance: LITHIUM
     Indication: AFFECTIVE DISORDER
     Dosage: 1800 MG, DAILY
     Route: 065
     Dates: start: 200101, end: 200703
  32. FLUPENTIXOL [Concomitant]
     Active Substance: FLUPENTIXOL
     Indication: PSYCHOTIC DISORDER
     Dosage: UNK
     Route: 065
     Dates: start: 200701, end: 200704
  33. VALPROATE [Concomitant]
     Active Substance: VALPROIC ACID
     Dosage: UNK
     Route: 065
     Dates: end: 200805

REACTIONS (6)
  - Obesity [Unknown]
  - Drug ineffective [Unknown]
  - Leukopenia [Unknown]
  - Obsessive-compulsive disorder [Unknown]
  - Hypertension [Unknown]
  - Dyslipidaemia [Unknown]
